FAERS Safety Report 6754750-2 (Version None)
Quarter: 2010Q2

REPORT INFORMATION
  Report Type: 
  Country: None (occurrence: None)
  Receive Date: 20100603
  Receipt Date: 20100531
  Transmission Date: 20101027
  Serious: Yes (Hospitalization)
  Sender: FDA-Public Use
  Company Number: FR-GILEAD-2010-0029538

PATIENT
  Sex: Male

DRUGS (1)
  1. TRUVADA [Suspect]
     Indication: DRUG USE FOR UNKNOWN INDICATION

REACTIONS (3)
  - DEHYDRATION [None]
  - DIALYSIS [None]
  - DIARRHOEA [None]
